FAERS Safety Report 9723957 (Version 4)
Quarter: 2013Q4

REPORT INFORMATION
  Report Type: Spontaneous
  Country: JP (occurrence: JP)
  Receive Date: 20131202
  Receipt Date: 20131230
  Transmission Date: 20140711
  Serious: Yes (Death, Hospitalization)
  Sender: FDA-Public Use
  Company Number: JP-PFIZER INC-2013336528

PATIENT
  Age: 80 Year
  Sex: Female
  Weight: 42 kg

DRUGS (6)
  1. ZYVOX [Suspect]
     Indication: STAPHYLOCOCCAL SEPSIS
     Dosage: 600 MG, 1X/DAY
     Route: 041
     Dates: start: 20131111, end: 20131112
  2. FINIBAX [Suspect]
     Indication: BACTERAEMIA
     Dosage: 0.5 MG, 3X/DAY
     Route: 042
     Dates: start: 20131106, end: 20131111
  3. VENOGLOBULIN [Suspect]
     Indication: THROMBOCYTOPENIA
     Dosage: 5 G, 1X/DAY
     Route: 042
     Dates: start: 20131106, end: 20131108
  4. FAMOTIDIN [Concomitant]
  5. BICANATE [Concomitant]
  6. OTSUKA NORMAL SALINE [Concomitant]

REACTIONS (5)
  - Septic shock [Fatal]
  - Anaphylactic reaction [Fatal]
  - Interstitial lung disease [Not Recovered/Not Resolved]
  - Metabolic acidosis [None]
  - Multi-organ failure [None]
